FAERS Safety Report 22938939 (Version 4)
Quarter: 2023Q4

REPORT INFORMATION
  Report Type: Spontaneous
  Country: RU (occurrence: RU)
  Receive Date: 20230913
  Receipt Date: 20231024
  Transmission Date: 20240110
  Serious: Yes (Other)
  Sender: FDA-Public Use
  Company Number: RU-AMERICAN REGENT INC-2023002187

PATIENT
  Age: 27 Year
  Sex: Female
  Weight: 48 kg

DRUGS (1)
  1. FERINJECT [Suspect]
     Active Substance: FERRIC CARBOXYMALTOSE
     Indication: Iron deficiency anaemia
     Dosage: 100 MILLIGRAM, DILUTED IN 100 ML IN SODIUM CHLORIDE (NACL)
     Dates: start: 20230902, end: 20230902

REACTIONS (7)
  - Heart rate decreased [Recovering/Resolving]
  - Cyanosis [Recovering/Resolving]
  - Pallor [Recovering/Resolving]
  - Unresponsive to stimuli [Unknown]
  - Product preparation issue [Unknown]
  - Blood pressure decreased [Recovering/Resolving]
  - Product quality issue [Unknown]

NARRATIVE: CASE EVENT DATE: 20230902
